FAERS Safety Report 22140446 (Version 1)
Quarter: 2023Q1

REPORT INFORMATION
  Report Type: Spontaneous
  Country: JP (occurrence: JP)
  Receive Date: 20230327
  Receipt Date: 20230327
  Transmission Date: 20230417
  Serious: Yes (Hospitalization, Other)
  Sender: FDA-Public Use
  Company Number: JP-VIATRISJAPAN-9705665AA

PATIENT
  Sex: Male
  Weight: 55.2 kg

DRUGS (10)
  1. CARDENALIN [Suspect]
     Active Substance: DOXAZOSIN MESYLATE
     Indication: Hypertension
     Dosage: 2 MILLIGRAM/DAY
     Route: 048
     Dates: end: 19961218
  2. ISOSORBIDE DINITRATE [Suspect]
     Active Substance: ISOSORBIDE DINITRATE
     Indication: Angina pectoris
     Dosage: 60 MILLIGRAM/DAY
     Route: 048
     Dates: end: 19961210
  3. ADALAT [Suspect]
     Active Substance: NIFEDIPINE
     Indication: Hypertension
     Dosage: 100 MILLIGRAM/DAY
     Route: 048
     Dates: start: 1990, end: 19970204
  4. BERAPROST SODIUM [Suspect]
     Active Substance: BERAPROST SODIUM
     Indication: Product used for unknown indication
     Dosage: 40 MICROGRAM/DAY
     Route: 048
     Dates: end: 19961218
  5. DILTIAZEM HYDROCHLORIDE [Concomitant]
     Active Substance: DILTIAZEM HYDROCHLORIDE
     Indication: Product used for unknown indication
     Dosage: UNK
     Route: 048
     Dates: end: 19961210
  6. HEPARININ [Concomitant]
     Indication: Product used for unknown indication
     Dosage: UNK
     Route: 065
     Dates: end: 19961216
  7. FURSULTIAMINE [Concomitant]
     Active Substance: FURSULTIAMINE
     Indication: Product used for unknown indication
     Dosage: UNK
     Route: 048
     Dates: end: 19961210
  8. EPOETIN ALFA [Concomitant]
     Active Substance: ERYTHROPOIETIN
     Indication: Nephrogenic anaemia
     Dosage: UNK
     Route: 042
     Dates: start: 1989
  9. HEPARININ [Concomitant]
     Indication: Product used for unknown indication
     Dosage: UNK
     Route: 042
  10. CALCIUM CARBONATE [Concomitant]
     Active Substance: CALCIUM CARBONATE
     Indication: Product used for unknown indication
     Dosage: UNK
     Route: 048

REACTIONS (2)
  - Thrombocytopenia [Unknown]
  - Haemolytic anaemia [Unknown]

NARRATIVE: CASE EVENT DATE: 19940101
